FAERS Safety Report 4325241-3 (Version None)
Quarter: 2004Q1

REPORT INFORMATION
  Report Type: 
  Country: None (occurrence: None)
  Receive Date: 20040324
  Receipt Date: 20040316
  Transmission Date: 20041129
  Serious: Yes (Death)
  Sender: FDA-Public Use
  Company Number: 2003187571JP

PATIENT
  Age: 59 Year
  Sex: Male

DRUGS (10)
  1. CAMPTOSAR [Suspect]
     Indication: COLORECTAL CANCER METASTATIC
     Dosage: 200 MG, CYCLIC, D1+15, IV DRIP
     Route: 041
     Dates: start: 20030704, end: 20030718
  2. FLUOROURACIL [Suspect]
     Indication: COLORECTAL CANCER METASTATIC
     Dosage: 750 MG, CYCLIC; 500 MG, CYCLIC, INTRA-ARTERIAL;  750 MG, CYCLIC,
     Dates: start: 20020117, end: 20020711
  3. FLUOROURACIL [Suspect]
     Indication: COLORECTAL CANCER METASTATIC
     Dosage: 750 MG, CYCLIC; 500 MG, CYCLIC, INTRA-ARTERIAL;  750 MG, CYCLIC,
     Dates: start: 20020725, end: 20021212
  4. FLUOROURACIL [Suspect]
     Indication: COLORECTAL CANCER METASTATIC
     Dosage: 750 MG, CYCLIC; 500 MG, CYCLIC, INTRA-ARTERIAL;  750 MG, CYCLIC,
     Dates: start: 20030306, end: 20030626
  5. MITOMYCIN [Suspect]
     Indication: COLORECTAL CANCER METASTATIC
     Dosage: 2 MG, CYCLIC,
     Dates: start: 20030306, end: 20030626
  6. UFT [Suspect]
     Indication: COLORECTAL CANCER METASTATIC
     Dosage: 1 G, TID, D1 5, ORAL
     Route: 048
     Dates: start: 20030705, end: 20030718
  7. CEFAZOLIN SODIUM [Concomitant]
  8. PHYSIO [Concomitant]
  9. AMICALIQ [Concomitant]
  10. SOLDEM 3 [Concomitant]

REACTIONS (10)
  - CANDIDIASIS [None]
  - GENERAL PHYSICAL HEALTH DETERIORATION [None]
  - INTERSTITIAL LUNG DISEASE [None]
  - MALIGNANT NEOPLASM PROGRESSION [None]
  - METASTASES TO LUNG [None]
  - OEDEMA PERIPHERAL [None]
  - PNEUMONIA FUNGAL [None]
  - PNEUMONITIS [None]
  - RESPIRATORY FAILURE [None]
  - SUPERINFECTION [None]
